FAERS Safety Report 11721128 (Version 2)
Quarter: 2015Q4

REPORT INFORMATION
  Report Type: Report from Study
  Country: GE (occurrence: GE)
  Receive Date: 20151110
  Receipt Date: 20151124
  Transmission Date: 20160304
  Serious: Yes (Death, Other)
  Sender: FDA-Public Use
  Company Number: GE-GILEAD-2015-0180467

PATIENT
  Age: 37 Year

DRUGS (3)
  1. SOFOSBUVIR [Suspect]
     Active Substance: SOFOSBUVIR
     Indication: HEPATITIS C
     Dosage: UNK UNKNOWN, UNK
     Route: 065
     Dates: start: 20150826
  2. INTERFERON ALFA NOS [Concomitant]
     Active Substance: INTERFERON ALFA-2A OR INTERFERON ALFA-2B
     Indication: HEPATITIS C
     Dosage: UNK UNKNOWN, UNK
     Route: 065
     Dates: start: 20150826
  3. RIBAVIRIN. [Concomitant]
     Active Substance: RIBAVIRIN
     Indication: HEPATITIS C
     Dosage: UNK UNKNOWN, UNK
     Route: 065
     Dates: start: 20150826

REACTIONS (1)
  - Death [Fatal]

NARRATIVE: CASE EVENT DATE: 20150918
